FAERS Safety Report 22174061 (Version 2)
Quarter: 2023Q2

REPORT INFORMATION
  Report Type: Spontaneous
  Country: US (occurrence: US)
  Receive Date: 20230405
  Receipt Date: 20230616
  Transmission Date: 20230722
  Serious: Yes (Hospitalization)
  Sender: FDA-Public Use
  Company Number: US-NOVOPROD-1044893

PATIENT
  Sex: Female

DRUGS (3)
  1. OZEMPIC [Suspect]
     Active Substance: SEMAGLUTIDE
     Dosage: 1MG (DOSE DECREASED)
     Route: 058
  2. OZEMPIC [Suspect]
     Active Substance: SEMAGLUTIDE
     Dosage: 2 MG (DOSE INCREASED)
     Route: 058
  3. OZEMPIC [Suspect]
     Active Substance: SEMAGLUTIDE
     Indication: Product used for unknown indication
     Dosage: 1MG
     Route: 058
     Dates: start: 202203

REACTIONS (7)
  - Palpitations [Not Recovered/Not Resolved]
  - Pain in extremity [Recovered/Resolved]
  - Hyperhidrosis [Unknown]
  - Nausea [Recovering/Resolving]
  - Asthenia [Unknown]
  - Diarrhoea [Recovering/Resolving]
  - Dizziness [Unknown]

NARRATIVE: CASE EVENT DATE: 20221201
